FAERS Safety Report 6235535-2 (Version None)
Quarter: 2009Q2

REPORT INFORMATION
  Report Type: 
  Country: None (occurrence: None)
  Receive Date: 20090618
  Receipt Date: 20081103
  Transmission Date: 20091009
  Serious: No
  Sender: FDA-Public Use
  Company Number: US-ASTRAZENECA-2008UW24574

PATIENT
  Age: 54 Year
  Sex: Female
  Weight: 72.6 kg

DRUGS (7)
  1. RHINOCORT [Suspect]
     Indication: HYPERSENSITIVITY
     Dosage: 1 SPRAY EACH NOSTRIL, TWICE DAILY
     Route: 045
  2. ADVAIR HFA [Concomitant]
  3. DILANTIN [Concomitant]
  4. CLONAZEPAM [Concomitant]
  5. ANALIPRIL [Concomitant]
  6. ANOTHER BLOOD PRESSURE MEDICINE- CAN;T REMEMBER THE NAME [Concomitant]
     Indication: BLOOD PRESSURE
  7. BENADRYL [Concomitant]

REACTIONS (1)
  - FALL [None]
